FAERS Safety Report 17411124 (Version 1)
Quarter: 2020Q1

REPORT INFORMATION
  Report Type: Spontaneous
  Country: US (occurrence: US)
  Receive Date: 20200212
  Receipt Date: 20200212
  Transmission Date: 20200409
  Serious: Yes (Hospitalization)
  Sender: FDA-Public Use
  Company Number: US-LUNDBECK-DKLU3012019

PATIENT
  Sex: Female

DRUGS (1)
  1. SABRIL [Suspect]
     Active Substance: VIGABATRIN
     Indication: EPILEPSY
     Route: 065

REACTIONS (4)
  - Pneumonia [Recovering/Resolving]
  - Speech disorder [Recovered/Resolved]
  - Movement disorder [Recovering/Resolving]
  - Respiratory failure [Recovering/Resolving]
